FAERS Safety Report 13759524 (Version 1)
Quarter: 2017Q3

REPORT INFORMATION
  Report Type: Report from Study
  Country: None (occurrence: US)
  Receive Date: 20170717
  Receipt Date: 20170717
  Transmission Date: 20171127
  Serious: No
  Sender: FDA-Public Use
  Company Number: US-IPSEN BIOPHARMACEUTICALS, INC.-2013-1564

PATIENT
  Sex: Male
  Weight: 13 kg

DRUGS (2)
  1. PULMICORT TURBUHALER [Concomitant]
     Active Substance: BUDESONIDE
     Indication: PRODUCT USED FOR UNKNOWN INDICATION
     Dosage: NOT REPORTED
     Route: 065
  2. INCRELEX [Suspect]
     Active Substance: MECASERMIN
     Indication: INSULIN-LIKE GROWTH FACTOR DECREASED
     Route: 058
     Dates: start: 20130121

REACTIONS (4)
  - Skin discolouration [None]
  - Injection site haemorrhage [None]
  - Inappropriate schedule of drug administration [Unknown]
  - Injection site discolouration [Not Recovered/Not Resolved]
